FAERS Safety Report 7439580-0 (Version None)
Quarter: 2011Q2

REPORT INFORMATION
  Report Type: 
  Country: None (occurrence: None)
  Receive Date: 20110427
  Receipt Date: 20090522
  Transmission Date: 20111010
  Serious: Yes (Hospitalization, Other)
  Sender: FDA-Public Use
  Company Number: US-BAYER-200923737NA

PATIENT
  Age: 67 Year
  Sex: Female
  Weight: 54.422 kg

DRUGS (11)
  1. LASIX [Concomitant]
     Dosage: UNK
     Route: 048
     Dates: start: 20060703
  2. NITROGLYCERIN [Concomitant]
     Dosage: UNK
     Route: 042
     Dates: start: 20070713
  3. METOPROLOL [Concomitant]
     Dosage: UNK
     Route: 048
     Dates: start: 20060703
  4. LIPITOR [Concomitant]
     Dosage: UNK
     Dates: start: 20060820
  5. ENALAPRIL MALEATE [Concomitant]
     Dosage: UNK
     Route: 048
     Dates: start: 20060703
  6. INSULIN [INSULIN] [Concomitant]
     Dosage: UNK
     Route: 042
     Dates: start: 20070713
  7. TRASYLOL [Suspect]
     Indication: CORONARY ARTERY BYPASS
     Dosage: UNK
     Route: 042
     Dates: start: 20070713, end: 20070713
  8. HEPARIN [Concomitant]
     Dosage: UNK
     Route: 042
     Dates: start: 20070713
  9. CYCLOBENZAPRINE [Concomitant]
     Dosage: 10 MG, UNK
     Route: 048
     Dates: start: 20070711
  10. SODIUM NITROPRUSSIDE [Concomitant]
     Dosage: UNK
     Route: 042
     Dates: start: 20070713
  11. LORAZEPAM [Concomitant]
     Dosage: 0.5 MG, UNK
     Route: 048
     Dates: start: 20070711

REACTIONS (15)
  - MYOCARDIAL INFARCTION [None]
  - RENAL INJURY [None]
  - DEPRESSION [None]
  - RENAL IMPAIRMENT [None]
  - EMOTIONAL DISTRESS [None]
  - ANXIETY [None]
  - UNEVALUABLE EVENT [None]
  - STRESS [None]
  - PAIN [None]
  - RENAL FAILURE [None]
  - FEAR [None]
  - INJURY [None]
  - CEREBROVASCULAR ACCIDENT [None]
  - MULTI-ORGAN FAILURE [None]
  - ANHEDONIA [None]
